FAERS Safety Report 6162096-9 (Version None)
Quarter: 2009Q2

REPORT INFORMATION
  Report Type: 
  Country: None (occurrence: None)
  Receive Date: 20090417
  Receipt Date: 20090408
  Transmission Date: 20091009
  Serious: Yes (Hospitalization)
  Sender: FDA-Public Use
  Company Number: OMPQ-NO-0903S-0195

PATIENT
  Age: 1 Month
  Sex: Male

DRUGS (2)
  1. OMNIPAQUE 300 [Suspect]
     Indication: X-RAY GASTROINTESTINAL TRACT
     Dosage: SINGLE DOSE, I.V.
     Route: 042
     Dates: start: 20090303, end: 20090303
  2. IOXITALAMATE SODIUM (TELEBRIX  12) [Concomitant]

REACTIONS (3)
  - COMA [None]
  - HYPERNATRAEMIA [None]
  - HYPEROSMOLAR STATE [None]
